FAERS Safety Report 12335717 (Version 1)
Quarter: 2016Q2

REPORT INFORMATION
  Report Type: Spontaneous
  Country: FI (occurrence: FI)
  Receive Date: 20160505
  Receipt Date: 20160505
  Transmission Date: 20160815
  Serious: Yes (Disabling)
  Sender: FDA-Public Use
  Company Number: FI-ROCHE-1749361

PATIENT
  Age: 57 Year
  Sex: Male
  Weight: 97 kg

DRUGS (45)
  1. CYCLOPHOSPHAMIDE. [Concomitant]
     Active Substance: CYCLOPHOSPHAMIDE
     Indication: WALDENSTROM^S MACROGLOBULINAEMIA
     Route: 048
     Dates: start: 20091008
  2. COZAAR [Concomitant]
     Active Substance: LOSARTAN POTASSIUM
     Route: 065
     Dates: start: 20091029, end: 20100107
  3. KEFEXIN [Concomitant]
     Active Substance: CEPHALEXIN
     Route: 065
     Dates: start: 20091005, end: 20091012
  4. MABTHERA [Suspect]
     Active Substance: RITUXIMAB
     Indication: WALDENSTROM^S MACROGLOBULINAEMIA
     Route: 042
     Dates: start: 20091029, end: 20100420
  5. FLUDARABINE [Concomitant]
     Active Substance: FLUDARABINE PHOSPHATE
     Indication: WALDENSTROM^S MACROGLOBULINAEMIA
     Route: 042
     Dates: start: 20100107, end: 20100422
  6. MITOXANTRONE [Concomitant]
     Active Substance: MITOXANTRONE HYDROCHLORIDE
     Indication: WALDENSTROM^S MACROGLOBULINAEMIA
     Route: 065
     Dates: start: 20100107, end: 20100420
  7. TRADOLAN RETARD [Concomitant]
     Active Substance: TRAMADOL HYDROCHLORIDE
     Route: 065
     Dates: start: 20141124, end: 20160101
  8. KALCIPOS-D [Concomitant]
     Active Substance: CALCIUM CARBONATE\CHOLECALCIFEROL
     Route: 065
     Dates: start: 20131127, end: 20160101
  9. TREXAN (FINLAND) [Concomitant]
     Route: 065
     Dates: start: 20131211, end: 20140430
  10. APURIN SANDOZ [Concomitant]
     Active Substance: ALLOPURINOL
     Route: 065
     Dates: start: 20150215, end: 20150217
  11. BURANA [Concomitant]
     Active Substance: IBUPROFEN
     Dosage: AS NEEDED
     Route: 065
     Dates: start: 20140413, end: 20140617
  12. ZOPINOX [Concomitant]
     Active Substance: ZOPICLONE
     Route: 065
     Dates: start: 20150911
  13. CYCLOPHOSPHAMIDE. [Concomitant]
     Active Substance: CYCLOPHOSPHAMIDE
     Route: 042
     Dates: start: 20120413, end: 20120413
  14. ORADEXON [Concomitant]
     Active Substance: DEXAMETHASONE
     Dosage: RESTARTED
     Route: 042
     Dates: start: 20091029
  15. ARANESP [Concomitant]
     Active Substance: DARBEPOETIN ALFA
     Route: 065
     Dates: start: 20141124, end: 20150511
  16. PREDNISOLON [Concomitant]
     Active Substance: PREDNISOLONE
     Route: 065
     Dates: start: 20131028
  17. TAMSULOSIN HYDROCHLORIDE. [Concomitant]
     Active Substance: TAMSULOSIN HYDROCHLORIDE
     Route: 065
     Dates: start: 20131122
  18. AMORION COMP [Concomitant]
     Route: 065
     Dates: start: 20140625, end: 20140629
  19. ALLONOL [Concomitant]
     Active Substance: ALLOPURINOL
     Route: 065
     Dates: start: 20120413, end: 20131122
  20. THYROXINE [Concomitant]
     Active Substance: LEVOTHYROXINE
     Route: 065
     Dates: start: 20160102
  21. MABTHERA [Suspect]
     Active Substance: RITUXIMAB
     Dosage: 6 CYCLES
     Route: 042
     Dates: start: 20150218, end: 20150721
  22. CYCLOPHOSPHAMIDE. [Concomitant]
     Active Substance: CYCLOPHOSPHAMIDE
     Dosage: RESTARTED
     Route: 065
     Dates: start: 20091029
  23. LOSATRIX [Concomitant]
     Active Substance: LOSARTAN POTASSIUM
     Route: 065
     Dates: start: 20120412, end: 20150219
  24. FLUCONAZOL [Concomitant]
     Active Substance: FLUCONAZOLE
     Route: 065
     Dates: start: 20100322, end: 20100324
  25. APURIN-HEXAL [Concomitant]
     Route: 065
     Dates: start: 20091002, end: 20100107
  26. LEVACT (FINLAND) [Concomitant]
     Active Substance: BENDAMUSTINE HYDROCHLORIDE
     Indication: WALDENSTROM^S MACROGLOBULINAEMIA
     Route: 042
     Dates: start: 20150216, end: 20150722
  27. DEXAMETASON [Concomitant]
     Active Substance: DEXAMETHASONE
     Dosage: DURING 4 DAYS AFTER MABTHERA INFUSION
     Route: 065
  28. DIFLUCAN [Concomitant]
     Active Substance: FLUCONAZOLE
     Route: 065
     Dates: start: 20131211, end: 20131224
  29. MABTHERA [Suspect]
     Active Substance: RITUXIMAB
     Dosage: 4 CYCLES
     Route: 042
     Dates: start: 20140617, end: 20140716
  30. LARIAM [Concomitant]
     Active Substance: MEFLOQUINE HYDROCHLORIDE
     Dosage: ACCORDING TO SEPARATE INSTRUCTIONS SINCE 07-MAR-2016
     Route: 065
  31. ORADEXON [Concomitant]
     Active Substance: DEXAMETHASONE
     Dosage: BEFORE MABTHERA
     Route: 042
     Dates: start: 20091008, end: 20150721
  32. ZOFRAN [Concomitant]
     Active Substance: ONDANSETRON HYDROCHLORIDE
     Route: 065
     Dates: start: 20091008, end: 20100422
  33. FURESIS [Concomitant]
     Active Substance: FUROSEMIDE
     Dosage: AS NEEDED
     Route: 065
     Dates: start: 20150216, end: 20150911
  34. NEUPOGEN NOVUM [Concomitant]
     Dosage: AS NEEDED IF NEUTROPHILS BELOW 1.0
     Route: 065
     Dates: start: 20091012, end: 20121126
  35. TRINEURIN [Concomitant]
     Route: 065
     Dates: start: 20160102, end: 20160204
  36. SOMAC [Concomitant]
     Active Substance: PANTOPRAZOLE SODIUM
     Route: 065
     Dates: start: 20131127, end: 20150201
  37. LOSARTAN. [Concomitant]
     Active Substance: LOSARTAN
     Route: 065
     Dates: start: 20150216
  38. COZAAR [Concomitant]
     Active Substance: LOSARTAN POTASSIUM
     Route: 065
     Dates: start: 20090930, end: 20091029
  39. MICARDIS [Concomitant]
     Active Substance: TELMISARTAN
     Route: 065
     Dates: start: 20100107, end: 20120412
  40. COTRIM D.S. [Concomitant]
     Active Substance: SULFAMETHOXAZOLE\TRIMETHOPRIM
     Route: 065
     Dates: start: 20100107, end: 20160228
  41. AVELOX (FINLAND) [Concomitant]
     Route: 065
     Dates: start: 20100322, end: 20100324
  42. NIVESTIM [Concomitant]
     Active Substance: FILGRASTIM
     Dosage: AS NEEDED
     Route: 065
     Dates: start: 20150215, end: 20150219
  43. TRAMAL [Concomitant]
     Active Substance: TRAMADOL
     Route: 065
     Dates: start: 20150911
  44. TEMESTA (FINLAND) [Concomitant]
     Route: 065
     Dates: start: 20150911
  45. CORTISONE [Concomitant]
     Active Substance: CORTISONE\HYDROCORTISONE

REACTIONS (3)
  - Rash [Unknown]
  - Progressive multifocal leukoencephalopathy [Not Recovered/Not Resolved]
  - Chills [Unknown]

NARRATIVE: CASE EVENT DATE: 20091029
